FAERS Safety Report 15064158 (Version 1)
Quarter: 2018Q2

REPORT INFORMATION
  Report Type: Report from Study
  Country: BR (occurrence: BR)
  Receive Date: 20180625
  Receipt Date: 20180625
  Transmission Date: 20180711
  Serious: Yes (Other)
  Sender: FDA-Public Use
  Company Number: BR-SHIRE-BR201822359

PATIENT

DRUGS (1)
  1. ELAPRASE [Suspect]
     Active Substance: IDURSULFASE
     Indication: PRODUCT USED FOR UNKNOWN INDICATION
     Dosage: 2 VIALS, 1X/WEEK
     Route: 042

REACTIONS (3)
  - Pyrexia [Recovered/Resolved]
  - Tremor [Recovered/Resolved]
  - Incorrect dose administered [Unknown]
